FAERS Safety Report 4449265-0 (Version None)
Quarter: 2004Q3

REPORT INFORMATION
  Report Type: 
  Country: None (occurrence: None)
  Receive Date: 20040913
  Receipt Date: 20040908
  Transmission Date: 20050211
  Serious: Yes (Death)
  Sender: FDA-Public Use
  Company Number: KII-2000-0002087

PATIENT
  Sex: Female

DRUGS (2)
  1. MORPHINE SULFATE [Suspect]
     Indication: CANCER PAIN
  2. DURAGESIC [Suspect]
     Indication: CANCER PAIN

REACTIONS (1)
  - BRAIN CANCER METASTATIC [None]
